FAERS Safety Report 21774253 (Version 2)
Quarter: 2022Q4

REPORT INFORMATION
  Report Type: Spontaneous
  Country: US (occurrence: US)
  Receive Date: 20221224
  Receipt Date: 20221228
  Transmission Date: 20230113
  Serious: No
  Sender: FDA-Public Use
  Company Number: US-002147023-NVSC2022US297475

PATIENT
  Sex: Female

DRUGS (1)
  1. COMBIPATCH [Suspect]
     Active Substance: ESTRADIOL\NORETHINDRONE ACETATE
     Indication: Hot flush
     Dosage: 0.05/0.14 MG, EVERY 3-4 DAYS
     Route: 062
     Dates: start: 202212

REACTIONS (3)
  - Product administration error [Not Recovered/Not Resolved]
  - Product colour issue [Not Recovered/Not Resolved]
  - Product adhesion issue [Not Recovered/Not Resolved]
